FAERS Safety Report 26015914 (Version 1)
Quarter: 2025Q4

REPORT INFORMATION
  Report Type: Spontaneous
  Country: US (occurrence: US)
  Receive Date: 20251109
  Receipt Date: 20251109
  Transmission Date: 20260118
  Serious: No
  Sender: NOSTRUM PHARMACEUTICALS LLC
  Company Number: US-NP-2025-105534-LIT-70

PATIENT
  Age: 27 Year
  Sex: Female

DRUGS (8)
  1. VENLAFAXINE [Suspect]
     Active Substance: VENLAFAXINE HYDROCHLORIDE
  2. TACROLIMUS [Concomitant]
     Active Substance: TACROLIMUS
     Indication: Immunosuppression
  3. MYCOPHENOLATE MOFETIL [Concomitant]
     Active Substance: MYCOPHENOLATE MOFETIL
     Indication: Immunosuppression
  4. AZATHIOPRINE [Concomitant]
     Active Substance: AZATHIOPRINE
  5. RIVAROXABAN [Concomitant]
     Active Substance: RIVAROXABAN
  6. ENOXAPARIN [Concomitant]
     Active Substance: ENOXAPARIN
  7. LISINOPRIL [Concomitant]
     Active Substance: LISINOPRIL
  8. ATORVASTATIN [Concomitant]
     Active Substance: ATORVASTATIN

REACTIONS (1)
  - Maternal exposure during pregnancy [Unknown]
